FAERS Safety Report 6739072-8 (Version None)
Quarter: 2010Q2

REPORT INFORMATION
  Report Type: 
  Country: None (occurrence: None)
  Receive Date: 20100525
  Receipt Date: 20100518
  Transmission Date: 20101027
  Serious: Yes (Hospitalization)
  Sender: FDA-Public Use
  Company Number: US-BIOGENIDEC-2010BI007165

PATIENT
  Age: 47 Year
  Sex: Female

DRUGS (1)
  1. TYSABRI [Suspect]
     Indication: MULTIPLE SCLEROSIS
     Route: 042
     Dates: start: 20080904, end: 20100419

REACTIONS (6)
  - AGRAPHIA [None]
  - APHASIA [None]
  - CEREBRAL INFARCTION [None]
  - EYE DISORDER [None]
  - FATIGUE [None]
  - PAIN IN EXTREMITY [None]
